FAERS Safety Report 22208270 (Version 2)
Quarter: 2023Q2

REPORT INFORMATION
  Report Type: Spontaneous
  Country: CH (occurrence: CH)
  Receive Date: 20230413
  Receipt Date: 20230428
  Transmission Date: 20230721
  Serious: Yes (Other)
  Sender: FDA-Public Use
  Company Number: CH-TEVA-2023-CH-2875753

PATIENT
  Age: 69 Year
  Sex: Female
  Weight: 36 kg

DRUGS (1)
  1. VORICONAZOLE [Suspect]
     Active Substance: VORICONAZOLE
     Indication: Bronchopulmonary aspergillosis
     Dosage: DOSE WAS ADJUSTED ACCORDING TO WEIGHT
     Route: 065

REACTIONS (1)
  - Hallucination, visual [Unknown]
